FAERS Safety Report 24338892 (Version 6)
Quarter: 2025Q1

REPORT INFORMATION
  Report Type: Spontaneous
  Country: US (occurrence: US)
  Receive Date: 20240919
  Receipt Date: 20250206
  Transmission Date: 20250409
  Serious: No
  Sender: PFIZER
  Company Number: US-PFIZER INC-202400253335

PATIENT
  Age: 14 Year
  Sex: Male
  Weight: 32.66 kg

DRUGS (1)
  1. GENOTROPIN [Suspect]
     Active Substance: SOMATROPIN
     Indication: Growth disorder
     Dosage: 1.9 MG, DAILY (EVERY NIGHT ADMINISTERED IN BUTTOCKS)

REACTIONS (3)
  - Device information output issue [Unknown]
  - Device power source issue [Unknown]
  - Product prescribing error [Unknown]
